FAERS Safety Report 9901400 (Version 2)
Quarter: 2014Q1

REPORT INFORMATION
  Report Type: Spontaneous
  Country: US (occurrence: US)
  Receive Date: 20140217
  Receipt Date: 20140217
  Transmission Date: 20141002
  Serious: No
  Sender: FDA-Public Use
  Company Number: US-GILEAD-2011-0040865

PATIENT
  Sex: Female
  Weight: 62.6 kg

DRUGS (7)
  1. LETAIRIS [Suspect]
     Indication: PULMONARY ARTERIAL HYPERTENSION
     Route: 048
     Dates: start: 20090602
  2. REVATIO [Concomitant]
  3. TYVASO [Concomitant]
  4. REMODULIN [Concomitant]
  5. TRAZODONE [Concomitant]
  6. ALENDRONATE SODIUM [Concomitant]
  7. PREMARIN [Concomitant]

REACTIONS (1)
  - Syncope [Unknown]
